FAERS Safety Report 10416876 (Version 13)
Quarter: 2015Q2

REPORT INFORMATION
  Report Type: Report from Study
  Country: AU (occurrence: AU)
  Receive Date: 20140828
  Receipt Date: 20150427
  Transmission Date: 20150821
  Serious: Yes (Hospitalization, Other)
  Sender: FDA-Public Use
  Company Number: PHHY2014AU080577

PATIENT
  Age: 52 Year
  Sex: Female

DRUGS (24)
  1. OLANZAPINE. [Suspect]
     Active Substance: OLANZAPINE
     Dosage: 20 MG, NOCTE FOR LONG TERM
     Route: 048
  2. PALIPERIDONE [Suspect]
     Active Substance: PALIPERIDONE
     Indication: PRODUCT USED FOR UNKNOWN INDICATION
     Dosage: INCREASING DOSES
     Route: 030
  3. ARIPIPRAZOLE. [Concomitant]
     Active Substance: ARIPIPRAZOLE
     Dosage: 15 MG, UNK
  4. LITHIUM CARBONATE. [Concomitant]
     Active Substance: LITHIUM CARBONATE
     Dosage: 500 MG, QD (NOCTE)
  5. CLOZARIL [Suspect]
     Active Substance: CLOZAPINE
     Indication: SCHIZOPHRENIA
     Dosage: 300 MG, (DOSE TITRATED)
     Route: 048
     Dates: start: 2012
  6. OLANZAPINE. [Suspect]
     Active Substance: OLANZAPINE
     Indication: PRODUCT USED FOR UNKNOWN INDICATION
     Dosage: 10 MG, MANE
     Route: 048
  7. ASENAPINE [Suspect]
     Active Substance: ASENAPINE
     Indication: PRODUCT USED FOR UNKNOWN INDICATION
     Dosage: 10 MG
     Route: 065
     Dates: start: 20140520
  8. GLICLAZIDE [Concomitant]
     Active Substance: GLICLAZIDE
     Indication: DIABETES MELLITUS
     Dosage: 60 MG, MANE
     Route: 065
  9. GLICLAZIDE [Concomitant]
     Active Substance: GLICLAZIDE
     Dosage: 120 MG, MANE FOR LONG TERM
  10. CLOZARIL [Suspect]
     Active Substance: CLOZAPINE
     Dosage: 400 MG, UNK
     Route: 048
     Dates: start: 20130201
  11. ASENAPINE [Suspect]
     Active Substance: ASENAPINE
     Dosage: 15 MG, UNK
     Route: 065
     Dates: start: 20140530, end: 20140608
  12. PALIPERIDONE [Suspect]
     Active Substance: PALIPERIDONE
     Dosage: VARIABLE DOSES FOR LONG TERM
     Route: 030
  13. LITHIUM CARBONATE. [Concomitant]
     Active Substance: LITHIUM CARBONATE
     Indication: SCHIZOPHRENIA
     Dosage: 750 MG, QD
     Route: 065
  14. CLOZARIL [Suspect]
     Active Substance: CLOZAPINE
     Dosage: 300 MG, QD (NOCTE)
     Route: 048
     Dates: start: 20130215, end: 20140520
  15. PIOGLITAZONE [Concomitant]
     Active Substance: PIOGLITAZONE
     Indication: DIABETES MELLITUS
     Dosage: 30 MG, MANE FOR LONG TERM
     Route: 048
  16. CLOZARIL [Suspect]
     Active Substance: CLOZAPINE
     Dosage: UNK
     Route: 048
     Dates: end: 20140619
  17. CLOZARIL [Suspect]
     Active Substance: CLOZAPINE
     Dosage: 300 MG, NOCTE
     Route: 048
     Dates: end: 201407
  18. QUETIAPINE [Suspect]
     Active Substance: QUETIAPINE
     Indication: PRODUCT USED FOR UNKNOWN INDICATION
     Dosage: UNK
     Route: 065
     Dates: start: 20140613, end: 2014
  19. THYROXINE [Concomitant]
     Active Substance: LEVOTHYROXINE
     Indication: PRODUCT USED FOR UNKNOWN INDICATION
     Dosage: 100 UG, QD
     Route: 065
  20. LORAZEPAM. [Suspect]
     Active Substance: LORAZEPAM
     Indication: PRODUCT USED FOR UNKNOWN INDICATION
     Dosage: 0.5 MG, TID
     Route: 065
  21. ARIPIPRAZOLE. [Concomitant]
     Active Substance: ARIPIPRAZOLE
     Indication: PRODUCT USED FOR UNKNOWN INDICATION
     Dosage: 10 MG, UNK
     Route: 065
  22. LITHIUM CARBONATE. [Concomitant]
     Active Substance: LITHIUM CARBONATE
     Dosage: 250 MG, BID (MANE FOR LONG TERM)
     Route: 048
  23. OLANZAPINE. [Suspect]
     Active Substance: OLANZAPINE
     Dosage: 5 MG, QD
     Route: 048
  24. METFORMIN [Concomitant]
     Active Substance: METFORMIN HYDROCHLORIDE
     Indication: DIABETES MELLITUS
     Dosage: 1000 MG, TID (LONG TERM)
     Route: 048

REACTIONS (56)
  - Cardiac failure [Recovered/Resolved with Sequelae]
  - Myocarditis [Recovered/Resolved with Sequelae]
  - Tachyarrhythmia [Unknown]
  - Bundle branch block right [Unknown]
  - Atrial flutter [Unknown]
  - Psychotic disorder [Unknown]
  - Delirium [Unknown]
  - Renal impairment [Unknown]
  - Pollakiuria [Unknown]
  - Rhinorrhoea [Unknown]
  - Aggression [Unknown]
  - Salivary hypersecretion [Unknown]
  - Vomiting [Unknown]
  - Oedema peripheral [Unknown]
  - Insomnia [Recovering/Resolving]
  - Hallucination, auditory [Recovering/Resolving]
  - Congestive cardiomyopathy [Unknown]
  - Weight decreased [Unknown]
  - Nausea [Unknown]
  - Dizziness [Unknown]
  - Neutrophilia [Not Recovered/Not Resolved]
  - Exercise tolerance decreased [Unknown]
  - Crepitations [Unknown]
  - Catatonia [Unknown]
  - Hyponatraemia [Recovering/Resolving]
  - Delusion [Unknown]
  - Left ventricular end-diastolic pressure increased [Unknown]
  - Tricuspid valve incompetence [Unknown]
  - Dilatation ventricular [Unknown]
  - Hyperkalaemia [Unknown]
  - Constipation [Unknown]
  - Hypotension [Unknown]
  - Ventricular hypokinesia [Unknown]
  - Systolic dysfunction [Unknown]
  - Anxiety [Unknown]
  - Sedation [Unknown]
  - Leukocytosis [Not Recovered/Not Resolved]
  - Cough [Unknown]
  - Left ventricular dysfunction [Recovered/Resolved]
  - Judgement impaired [Unknown]
  - Mental impairment [Unknown]
  - Ejection fraction decreased [Recovered/Resolved]
  - Abnormal behaviour [Unknown]
  - Antipsychotic drug level increased [Unknown]
  - Diarrhoea [Unknown]
  - Dyspnoea [Unknown]
  - Pyrexia [Recovered/Resolved]
  - Myocardial infarction [Unknown]
  - Drug ineffective [Unknown]
  - Sinus tachycardia [Unknown]
  - Bundle branch block left [Unknown]
  - Myocardial ischaemia [Unknown]
  - Pulmonary valve incompetence [Unknown]
  - Hypoxia [Unknown]
  - Mood altered [Unknown]
  - Drug tolerance [Unknown]

NARRATIVE: CASE EVENT DATE: 20140617
